FAERS Safety Report 13072684 (Version 2)
Quarter: 2018Q1

REPORT INFORMATION
  Report Type: Spontaneous
  Country: US (occurrence: US)
  Receive Date: 20161229
  Receipt Date: 20180115
  Transmission Date: 20180508
  Serious: Yes (Other)
  Sender: FDA-Public Use
  Company Number: US-SA-2016SA195796

PATIENT
  Age: 54 Year
  Sex: Female
  Weight: 77.11 kg

DRUGS (11)
  1. TAXOTERE [Suspect]
     Active Substance: DOCETAXEL
     Indication: BREAST CANCER FEMALE
     Route: 051
     Dates: start: 20111122, end: 20111122
  2. VITAMIN D [Concomitant]
     Active Substance: CHOLECALCIFEROL
     Route: 065
     Dates: start: 20170710
  3. OMEGA 3 [Concomitant]
     Active Substance: OMEGA-3 FATTY ACIDS
     Route: 065
     Dates: start: 201101
  4. SIMVASTATIN. [Concomitant]
     Active Substance: SIMVASTATIN
     Route: 065
     Dates: start: 200701
  5. FISH OIL [Concomitant]
     Active Substance: FISH OIL
     Route: 065
     Dates: start: 201101
  6. KLOR-CON [Concomitant]
     Active Substance: POTASSIUM CHLORIDE
     Route: 065
     Dates: start: 201501
  7. EXEMESTANE. [Concomitant]
     Active Substance: EXEMESTANE
     Route: 065
     Dates: start: 20120301, end: 20170710
  8. HYDROCHLOROTHIAZIDE. [Concomitant]
     Active Substance: HYDROCHLOROTHIAZIDE
     Route: 065
     Dates: start: 201501
  9. THYROXIN [Concomitant]
     Active Substance: LEVOTHYROXINE
     Route: 065
     Dates: start: 201701
  10. TAXOTERE [Suspect]
     Active Substance: DOCETAXEL
     Indication: BREAST CANCER FEMALE
     Route: 051
     Dates: start: 20120301, end: 20120301
  11. CALCIUM D [Concomitant]
     Active Substance: CALCIUM\VITAMIN D
     Route: 065
     Dates: start: 201101

REACTIONS (9)
  - Discomfort [Unknown]
  - Hair colour changes [Unknown]
  - Injury [Unknown]
  - Impaired quality of life [Unknown]
  - Alopecia [Recovering/Resolving]
  - Anxiety [Unknown]
  - Emotional distress [Unknown]
  - Hair texture abnormal [Unknown]
  - Psychological trauma [Unknown]

NARRATIVE: CASE EVENT DATE: 201201
